FAERS Safety Report 22259582 (Version 1)
Quarter: 2023Q2

REPORT INFORMATION
  Report Type: Spontaneous
  Country: US (occurrence: None)
  Receive Date: 20230426
  Receipt Date: 20230426
  Transmission Date: 20230722
  Serious: Yes (Hospitalization, Disabling)
  Sender: FDA-Public Use
  Company Number: None

PATIENT
  Age: 29 Year
  Sex: Female
  Weight: 94.5 kg

DRUGS (6)
  1. GABAPENTIN [Suspect]
     Active Substance: GABAPENTIN
     Indication: Migraine
  2. PREDNISONE [Concomitant]
     Active Substance: PREDNISONE
  3. LEVOTHYROXINE [Concomitant]
     Active Substance: LEVOTHYROXINE
  4. ESTRADIOL [Concomitant]
     Active Substance: ESTRADIOL
  5. duolextine [Concomitant]
  6. SOMATROPIN [Concomitant]
     Active Substance: SOMATROPIN

REACTIONS (8)
  - Drug ineffective [None]
  - Loss of consciousness [None]
  - Seizure [None]
  - Unresponsive to stimuli [None]
  - Nervous system disorder [None]
  - Syncope [None]
  - Paralysis [None]
  - Headache [None]

NARRATIVE: CASE EVENT DATE: 20220206
